FAERS Safety Report 8471845-6 (Version None)
Quarter: 2012Q2

REPORT INFORMATION
  Report Type: 
  Country: None (occurrence: None)
  Receive Date: 20120323
  Receipt Date: 20111003
  Transmission Date: 20120825
  Serious: Yes (Other)
  Sender: FDA-Public Use
  Company Number: 163-21880-11100264

PATIENT
  Age: 46 Year
  Sex: Male
  Weight: 107.5 kg

DRUGS (4)
  1. DIPHENHYDRAMINE HCL [Concomitant]
  2. REVLIMID [Suspect]
     Indication: LYMPHOMA
     Dosage: 10 MG, 1 IN 1 D, PO ; 5 MG, 1 IN 1 D, PO
     Route: 048
     Dates: start: 20110922, end: 20110929
  3. REVLIMID [Suspect]
     Indication: LYMPHOMA
     Dosage: 10 MG, 1 IN 1 D, PO ; 5 MG, 1 IN 1 D, PO
     Route: 048
     Dates: start: 20111001
  4. APAP/HYDROCODONE (PROCET /USA/) [Concomitant]

REACTIONS (1)
  - NEUTROPENIA [None]
